FAERS Safety Report 8523442-1 (Version None)
Quarter: 2012Q3

REPORT INFORMATION
  Report Type: 
  Country: None (occurrence: None)
  Receive Date: 20120720
  Receipt Date: 20120717
  Transmission Date: 20120928
  Serious: Yes (Other)
  Sender: FDA-Public Use
  Company Number: US-PFIZER INC-2012173703

PATIENT
  Sex: Female

DRUGS (2)
  1. PRISTIQ [Suspect]
     Dosage: 50 MG, DAILY
  2. PROZAC [Suspect]
     Dosage: UNK

REACTIONS (2)
  - DEPRESSIVE SYMPTOM [None]
  - ANXIETY [None]
